FAERS Safety Report 8331159-1 (Version None)
Quarter: 2012Q2

REPORT INFORMATION
  Report Type: 
  Country: None (occurrence: None)
  Receive Date: 20120502
  Receipt Date: 20120412
  Transmission Date: 20120825
  Serious: No
  Sender: FDA-Public Use
  Company Number: US-AMGEN-USASP2012023297

PATIENT
  Age: 61 Year
  Sex: Female

DRUGS (1)
  1. ENBREL [Suspect]
     Indication: RHEUMATOID ARTHRITIS
     Dosage: 25 MG, 2 TIMES/WK
     Dates: start: 19980101

REACTIONS (8)
  - INJECTION SITE PAIN [None]
  - MYCOTIC ALLERGY [None]
  - SINUS CONGESTION [None]
  - SINUSITIS [None]
  - SEASONAL ALLERGY [None]
  - ASTHMA [None]
  - ALLERGY TO ANIMAL [None]
  - ALLERGY TO CHEMICALS [None]
